FAERS Safety Report 17906861 (Version 2)
Quarter: 2020Q2

REPORT INFORMATION
  Report Type: Report from Study
  Country: US (occurrence: US)
  Receive Date: 20200617
  Receipt Date: 20200626
  Transmission Date: 20200714
  Serious: Yes (Other)
  Sender: FDA-Public Use
  Company Number: US-AMGEN-USASL2020079839

PATIENT
  Age: 61 Year
  Sex: Male

DRUGS (1)
  1. ENBREL [Suspect]
     Active Substance: ETANERCEPT
     Indication: RHEUMATOID ARTHRITIS
     Dosage: 50 MILLIGRAM, QWK
     Route: 058
     Dates: start: 20170602, end: 20191209

REACTIONS (4)
  - Liver operation [Unknown]
  - Autoimmune disorder [Unknown]
  - Decreased immune responsiveness [Unknown]
  - Atypical mycobacterial pneumonia [Unknown]

NARRATIVE: CASE EVENT DATE: 201906
